FAERS Safety Report 7659731-2 (Version None)
Quarter: 2011Q3

REPORT INFORMATION
  Report Type: 
  Country: None (occurrence: None)
  Receive Date: 20110805
  Receipt Date: 20101014
  Transmission Date: 20111222
  Serious: No
  Sender: FDA-Public Use
  Company Number: US-ABBOTT-10P-163-0678986-00

PATIENT
  Sex: Male

DRUGS (2)
  1. UNKNOWN [Concomitant]
     Indication: PRODUCT USED FOR UNKNOWN INDICATION
  2. DEPAKOTE ER [Suspect]
     Indication: AFFECTIVE DISORDER
     Dosage: ABOUT 4 YEARS AGO

REACTIONS (4)
  - WEIGHT DECREASED [None]
  - AMMONIA INCREASED [None]
  - MOTOR DYSFUNCTION [None]
  - PANIC ATTACK [None]
